FAERS Safety Report 4954075-1 (Version None)
Quarter: 2006Q1

REPORT INFORMATION
  Report Type: 
  Country: None (occurrence: None)
  Receive Date: 20060324
  Receipt Date: 20060324
  Transmission Date: 20060701
  Serious: Yes (Hospitalization)
  Sender: FDA-Public Use
  Company Number: None

PATIENT
  Age: 69 Year
  Sex: Male

DRUGS (3)
  1. OXALIPLATIN 130 MG/M2 [Suspect]
     Indication: ADENOCARCINOMA
     Dosage: 256 MG IV   DOSE #1
     Route: 042
     Dates: start: 20060206
  2. OXALIPLATIN 130 MG/M2 [Suspect]
     Indication: METASTASES TO SMALL INTESTINE
     Dosage: 256 MG IV   DOSE #1
     Route: 042
     Dates: start: 20060206
  3. CAPECITABINE 1500 MG/M2 [Suspect]
     Dosage: 1500 MG PO Q12H
     Route: 048
     Dates: start: 20060206, end: 20060215

REACTIONS (5)
  - BLOOD CREATININE INCREASED [None]
  - DIARRHOEA [None]
  - NAUSEA [None]
  - SMALL INTESTINAL OBSTRUCTION [None]
  - VOMITING [None]
